FAERS Safety Report 6152798-2 (Version None)
Quarter: 2009Q2

REPORT INFORMATION
  Report Type: 
  Country: None (occurrence: None)
  Receive Date: 20090409
  Receipt Date: 20090323
  Transmission Date: 20091009
  Serious: No
  Sender: FDA-Public Use
  Company Number: TAP2009Q00305

PATIENT
  Age: 55 Year
  Sex: Male
  Weight: 90.7194 kg

DRUGS (1)
  1. PREVACID [Suspect]
     Indication: GASTROOESOPHAGEAL REFLUX DISEASE
     Dosage: 30 MG (30 MG, 1 IN 1 D), PER ORAL
     Route: 048
     Dates: start: 20080101

REACTIONS (6)
  - AGITATION [None]
  - CONFUSIONAL STATE [None]
  - DEMENTIA [None]
  - PNEUMONIA [None]
  - RESTLESSNESS [None]
  - VISUAL ACUITY REDUCED [None]
